FAERS Safety Report 6328888-8 (Version None)
Quarter: 2009Q3

REPORT INFORMATION
  Report Type: 
  Country: None (occurrence: None)
  Receive Date: 20090826
  Receipt Date: 20090807
  Transmission Date: 20100115
  Serious: Yes (Other)
  Sender: FDA-Public Use
  Company Number: NL-JNJFOC-20090807382

PATIENT
  Age: 74 Year
  Sex: Male

DRUGS (2)
  1. PEVARYL [Suspect]
     Indication: FUNGAL INFECTION
     Dosage: 10MG/G
     Route: 061
  2. ACENOCOUMAROL [Interacting]
     Indication: DRUG USE FOR UNKNOWN INDICATION
     Route: 065

REACTIONS (2)
  - COAGULOPATHY [None]
  - DRUG INTERACTION [None]
